FAERS Safety Report 20898760 (Version 1)
Quarter: 2022Q2

REPORT INFORMATION
  Report Type: Spontaneous
  Country: JP (occurrence: JP)
  Receive Date: 20220601
  Receipt Date: 20220601
  Transmission Date: 20220721
  Serious: Yes (Death, Life-Threatening, Hospitalization, Other)
  Sender: FDA-Public Use
  Company Number: JP-CELLTRION INC.-2022JP007939

PATIENT

DRUGS (1)
  1. INFLIXIMAB [Suspect]
     Active Substance: INFLIXIMAB
     Indication: Diarrhoea
     Dosage: 5 MILLIGRAM/KILOGRAM

REACTIONS (4)
  - Multiple organ dysfunction syndrome [Fatal]
  - COVID-19 [Unknown]
  - Drug effective for unapproved indication [Unknown]
  - Off label use [Unknown]
